FAERS Safety Report 5483571-6 (Version None)
Quarter: 2007Q4

REPORT INFORMATION
  Report Type: 
  Country: None (occurrence: None)
  Receive Date: 20071012
  Receipt Date: 20071003
  Transmission Date: 20080405
  Serious: Yes (Other)
  Sender: FDA-Public Use
  Company Number: DZ-AVENTIS-200719259GDDC

PATIENT
  Age: 16 Year
  Sex: Male

DRUGS (1)
  1. TELFAST                            /01314201/ [Suspect]
     Indication: URTICARIA
     Dosage: DOSE QUANTITY: 1
     Route: 048

REACTIONS (4)
  - ASTHENIA [None]
  - HYPERHIDROSIS [None]
  - TONIC CLONIC MOVEMENTS [None]
  - UNEVALUABLE EVENT [None]
